FAERS Safety Report 10587276 (Version 1)
Quarter: 2014Q4

REPORT INFORMATION
  Report Type: Spontaneous
  Country: CO (occurrence: CO)
  Receive Date: 20141117
  Receipt Date: 20141117
  Transmission Date: 20150529
  Serious: Yes (Death, Hospitalization)
  Sender: FDA-Public Use
  Company Number: CO-JNJFOC-20141108509

PATIENT
  Age: 68 Year
  Sex: Male

DRUGS (1)
  1. REMICADE [Suspect]
     Active Substance: INFLIXIMAB
     Indication: PSORIASIS
     Route: 042
     Dates: start: 20090501, end: 20140917

REACTIONS (6)
  - Diarrhoea [Fatal]
  - Dyspnoea [Fatal]
  - Fluid retention [Fatal]
  - Rash generalised [Fatal]
  - Paralysis [Fatal]
  - Vomiting [Fatal]

NARRATIVE: CASE EVENT DATE: 20140916
